FAERS Safety Report 4851794-2 (Version None)
Quarter: 2005Q4

REPORT INFORMATION
  Report Type: 
  Country: None (occurrence: None)
  Receive Date: 20051209
  Receipt Date: 20051129
  Transmission Date: 20060501
  Serious: Yes (Hospitalization)
  Sender: FDA-Public Use
  Company Number: 219947

PATIENT
  Sex: Male

DRUGS (5)
  1. MABTHERA                        (RITUXIMAB) [Suspect]
  2. CYCLOPHOSPHAMIDE [Concomitant]
  3. VINCRISTINE [Concomitant]
  4. DOXORUBICIN HCL [Concomitant]
  5. PREDNISONE [Concomitant]

REACTIONS (1)
  - ANAPHYLACTIC REACTION [None]
